FAERS Safety Report 19641776 (Version 1)
Quarter: 2021Q3

REPORT INFORMATION
  Report Type: Report from Study
  Country: US (occurrence: US)
  Receive Date: 20210730
  Receipt Date: 20210730
  Transmission Date: 20211014
  Serious: Yes (Other)
  Sender: FDA-Public Use
  Company Number: US-ASTRAZENECA-2021A644399

PATIENT
  Sex: Male

DRUGS (1)
  1. TAGRISSO [Suspect]
     Active Substance: OSIMERTINIB
     Indication: LUNG CARCINOMA CELL TYPE UNSPECIFIED STAGE 0
     Route: 048

REACTIONS (6)
  - Asthenia [Unknown]
  - Tympanic membrane perforation [Unknown]
  - Fatigue [Unknown]
  - Transient ischaemic attack [Unknown]
  - Ear infection [Unknown]
  - Somnolence [Unknown]
